FAERS Safety Report 11965492 (Version 1)
Quarter: 2016Q1

REPORT INFORMATION
  Report Type: Spontaneous
  Country: None (occurrence: None)
  Receive Date: 20160125
  Receipt Date: 20160125
  Transmission Date: 20160526
  Serious: Yes (Hospitalization, Disabling, Other)
  Sender: FDA-Public Use
  Company Number: None

PATIENT
  Age: 39 Year
  Sex: Female
  Weight: 149.69 kg

DRUGS (5)
  1. CPAP MACHINE [Concomitant]
  2. MULTI MINERALS [Concomitant]
     Active Substance: MINERALS\VITAMINS
  3. VITAMIN C [Concomitant]
     Active Substance: ASCORBIC ACID
  4. VITAMIN D [Concomitant]
     Active Substance: CHOLECALCIFEROL
  5. MAGNEVIST [Suspect]
     Active Substance: GADOPENTETATE DIMEGLUMINE

REACTIONS (9)
  - Burning sensation [None]
  - Infusion site extravasation [None]
  - Fatigue [None]
  - Mental impairment [None]
  - Drug clearance decreased [None]
  - Rash [None]
  - Hypoaesthesia [None]
  - Asthenia [None]
  - Paraesthesia [None]

NARRATIVE: CASE EVENT DATE: 20141223
